FAERS Safety Report 7517612-9 (Version None)
Quarter: 2011Q2

REPORT INFORMATION
  Report Type: 
  Country: None (occurrence: None)
  Receive Date: 20110601
  Receipt Date: 20110525
  Transmission Date: 20111010
  Serious: Yes (Life-Threatening, Hospitalization)
  Sender: FDA-Public Use
  Company Number: PL-MERCK-1105POL00010

PATIENT
  Age: 51 Year
  Sex: Male

DRUGS (9)
  1. INDAPAMIDE [Concomitant]
     Route: 048
  2. INSULIN [Concomitant]
     Indication: DIABETES MELLITUS
     Route: 065
  3. AMLODIPINE [Concomitant]
     Route: 048
  4. ASPIRIN [Concomitant]
     Route: 048
  5. SPIRONOLACTONE [Concomitant]
     Route: 048
  6. BISOPROLOL [Concomitant]
     Route: 048
  7. ZOCOR [Suspect]
     Indication: CORONARY ARTERY DISEASE
     Route: 048
  8. QUINAPRIL HYDROCHLORIDE [Concomitant]
     Route: 048
  9. ISOSORBIDE MONONITRATE [Concomitant]
     Route: 048

REACTIONS (3)
  - RHABDOMYOLYSIS [None]
  - HYPERKALAEMIA [None]
  - ATRIOVENTRICULAR BLOCK [None]
